FAERS Safety Report 4854289-5 (Version None)
Quarter: 2005Q4

REPORT INFORMATION
  Report Type: 
  Country: None (occurrence: None)
  Receive Date: 20051213
  Receipt Date: 20051213
  Transmission Date: 20060501
  Serious: Yes (Life-Threatening, Hospitalization, Disabling, Congenital Anomaly)
  Sender: FDA-Public Use
  Company Number: None

PATIENT
  Age: 77 Year
  Sex: Male
  Weight: 86.1834 kg

DRUGS (2)
  1. ASPIRIN [Suspect]
     Indication: ANTICOAGULANT THERAPY
     Dosage: 325 DAILY ONCE MO
     Route: 048
     Dates: start: 20011130
  2. COUMADIN [Suspect]
     Indication: INTRACARDIAC THROMBUS
     Dosage: 5 MG DAILY MO
     Route: 048
     Dates: start: 20020305

REACTIONS (5)
  - ASTHENIA [None]
  - CARDIAC DISORDER [None]
  - ELECTROCARDIOGRAM ABNORMAL [None]
  - HAEMORRHAGE [None]
  - INTRACARDIAC THROMBUS [None]
